FAERS Safety Report 8373978-1 (Version None)
Quarter: 2012Q2

REPORT INFORMATION
  Report Type: 
  Country: None (occurrence: None)
  Receive Date: 20120521
  Receipt Date: 20120510
  Transmission Date: 20120825
  Serious: Yes (Other)
  Sender: FDA-Public Use
  Company Number: US-ASTRAZENECA-2012SE30540

PATIENT
  Age: 76 Year
  Sex: Male

DRUGS (6)
  1. PLAVIX [Concomitant]
  2. SYMBICORT [Suspect]
     Route: 055
  3. TRAMADOL HYDROCHLORIDE [Concomitant]
  4. CRESTOR [Suspect]
     Route: 048
  5. ASPIRIN [Concomitant]
  6. CARVIDOL [Concomitant]

REACTIONS (3)
  - MYOCARDIAL INFARCTION [None]
  - WEIGHT DECREASED [None]
  - DYSPNOEA [None]
